FAERS Safety Report 12358936 (Version 2)
Quarter: 2017Q1

REPORT INFORMATION
  Report Type: Report from Study
  Country: IT (occurrence: IT)
  Receive Date: 20160512
  Receipt Date: 20170228
  Transmission Date: 20170428
  Serious: Yes (Other)
  Sender: FDA-Public Use
  Company Number: IT-CELGENEUS-ITA-2016030586

PATIENT
  Age: 66 Year
  Sex: Female
  Weight: 71 kg

DRUGS (1)
  1. REVLIMID [Suspect]
     Active Substance: LENALIDOMIDE
     Indication: PLASMA CELL MYELOMA
     Dosage: 5 MILLIGRAM
     Route: 048
     Dates: start: 20130702, end: 20151216

REACTIONS (1)
  - Myelodysplastic syndrome [Recovered/Resolved with Sequelae]

NARRATIVE: CASE EVENT DATE: 20160217
